FAERS Safety Report 6648647-6 (Version None)
Quarter: 2010Q1

REPORT INFORMATION
  Report Type: 
  Country: None (occurrence: None)
  Receive Date: 20100319
  Receipt Date: 20100303
  Transmission Date: 20100710
  Serious: Yes (Hospitalization)
  Sender: FDA-Public Use
  Company Number: 10-018

PATIENT
  Age: 10 Year
  Sex: Male

DRUGS (2)
  1. CEFTRIAXONE [Suspect]
     Indication: ABSCESS
     Dosage: 2 GRAMS PER DAY, IV
     Route: 042
  2. CEFTRIAXONE [Suspect]
     Indication: POSTOPERATIVE CARE
     Dosage: 2 GRAMS PER DAY, IV
     Route: 042

REACTIONS (15)
  - ABSCESS [None]
  - ACTIVATED PARTIAL THROMBOPLASTIN TIME PROLONGED [None]
  - BLOOD FIBRINOGEN INCREASED [None]
  - BLOOD PHOSPHORUS INCREASED [None]
  - FIBRIN D DIMER INCREASED [None]
  - HAEMOLYTIC ANAEMIA [None]
  - HEART RATE INCREASED [None]
  - PERITONEAL DIALYSIS [None]
  - PLATELET COUNT DECREASED [None]
  - PROTHROMBIN TIME PROLONGED [None]
  - PRURITUS GENERALISED [None]
  - RASH MACULO-PAPULAR [None]
  - RENAL FAILURE ACUTE [None]
  - RENAL TUBULAR NECROSIS [None]
  - SOMNOLENCE [None]
